FAERS Safety Report 5597329-0 (Version None)
Quarter: 2008Q1

REPORT INFORMATION
  Report Type: 
  Country: None (occurrence: None)
  Receive Date: 20080121
  Receipt Date: 20080116
  Transmission Date: 20080703
  Serious: Yes (Life-Threatening, Hospitalization, Disabling)
  Sender: FDA-Public Use
  Company Number: US-JNJFOC-20040703897

PATIENT
  Sex: Female
  Weight: 18.14 kg

DRUGS (4)
  1. CHILDREN'S MOTRIN [Suspect]
     Route: 048
  2. CHILDREN'S MOTRIN [Suspect]
     Indication: PYREXIA
     Route: 048
  3. TYLENOL [Concomitant]
     Dosage: DOSAGE UNKNOWN
  4. MELATONIN [Concomitant]
     Dosage: DOSAGE UNKNOWN

REACTIONS (2)
  - CEREBRAL HAEMORRHAGE [None]
  - TOXIC EPIDERMAL NECROLYSIS [None]
